FAERS Safety Report 4723520-9 (Version None)
Quarter: 2005Q3

REPORT INFORMATION
  Report Type: 
  Country: None (occurrence: None)
  Receive Date: 20050721
  Receipt Date: 20050721
  Transmission Date: 20060218
  Serious: Yes (Hospitalization)
  Sender: FDA-Public Use
  Company Number: None

PATIENT
  Age: 38 Year
  Sex: Male
  Weight: 121 kg

DRUGS (4)
  1. INTEGRILIN [Suspect]
     Indication: CORONARY ANGIOPLASTY
     Dosage: 2MCG/KG/MIN ONCE INTRAVENOUS
     Route: 042
     Dates: start: 20050408, end: 20050408
  2. PLAVIX [Suspect]
     Indication: CORONARY ANGIOPLASTY
     Dosage: 300MG ONCE ORAL
     Route: 048
     Dates: start: 20040408, end: 20050508
  3. ASPIRIN [Concomitant]
  4. EPTIFIBATIDE [Concomitant]

REACTIONS (4)
  - ABDOMINAL PAIN [None]
  - HYPOTENSION [None]
  - POST PROCEDURAL HAEMORRHAGE [None]
  - RETROPERITONEAL HAEMATOMA [None]
